FAERS Safety Report 4803175-5 (Version None)
Quarter: 2005Q4

REPORT INFORMATION
  Report Type: 
  Country: None (occurrence: None)
  Receive Date: 20051013
  Receipt Date: 20050926
  Transmission Date: 20060501
  Serious: Yes (Hospitalization)
  Sender: FDA-Public Use
  Company Number: US_0508121378

PATIENT
  Sex: Male
  Weight: 126 kg

DRUGS (1)
  1. TADALAFIL [Suspect]
     Indication: ERECTILE DYSFUNCTION
     Dosage: 5 MG
     Dates: start: 20050810

REACTIONS (14)
  - ABDOMINAL PAIN [None]
  - ATELECTASIS [None]
  - BACK PAIN [None]
  - BLOOD UREA NITROGEN/CREATININE RATIO DECREASED [None]
  - GASTRITIS [None]
  - GASTROOESOPHAGEAL REFLUX DISEASE [None]
  - HAEMOGLOBIN INCREASED [None]
  - HEPATIC STEATOSIS [None]
  - NAUSEA [None]
  - PNEUMONIA ASPIRATION [None]
  - RED BLOOD CELL COUNT INCREASED [None]
  - REFLUX OESOPHAGITIS [None]
  - SMALL INTESTINAL OBSTRUCTION [None]
  - WHITE BLOOD CELL COUNT INCREASED [None]
